FAERS Safety Report 6831532-4 (Version None)
Quarter: 2010Q3

REPORT INFORMATION
  Report Type: 
  Country: None (occurrence: None)
  Receive Date: 20100712
  Receipt Date: 20100628
  Transmission Date: 20110219
  Serious: Yes (Other)
  Sender: FDA-Public Use
  Company Number: PHHY2010US42428

PATIENT
  Sex: Female

DRUGS (13)
  1. RECLAST [Suspect]
     Dosage: UNK
     Dates: start: 20100526
  2. ENBREL [Concomitant]
     Indication: ARTHRITIS
  3. ATARAX [Concomitant]
     Dosage: 20 MG, ONCE A DAY
  4. ATACAND [Concomitant]
     Dosage: 32 MG ONCE A DAY
  5. DILTIAZEM [Concomitant]
     Dosage: 240 MG ONCE A DAY
  6. CARDIZEM [Concomitant]
  7. DETROL [Concomitant]
     Dosage: 4 MG ONCE A DAY
  8. ELAVIL [Concomitant]
     Dosage: 10 MG ONCE A DAY
  9. MOBIC [Concomitant]
     Dosage: 7.5 MG ONCE A DAY
  10. ACYCLOVIR [Concomitant]
     Dosage: 800 MG ONCE A DAY
  11. MULTI-VITAMINS [Concomitant]
  12. CALCIUM [Concomitant]
  13. VITAMIN D [Concomitant]
     Dosage: 1000 MG, UNK

REACTIONS (8)
  - CHILLS [None]
  - DECREASED APPETITE [None]
  - HAEMATURIA [None]
  - INFLUENZA LIKE ILLNESS [None]
  - MALAISE [None]
  - PAIN [None]
  - PYREXIA [None]
  - URINARY TRACT INFECTION [None]
